FAERS Safety Report 6589855-2 (Version None)
Quarter: 2010Q1

REPORT INFORMATION
  Report Type: 
  Country: None (occurrence: None)
  Receive Date: 20100219
  Receipt Date: 20100211
  Transmission Date: 20100710
  Serious: Yes (Hospitalization)
  Sender: FDA-Public Use
  Company Number: CA-JNJFOC-20100206588

PATIENT
  Sex: Male
  Weight: 73 kg

DRUGS (8)
  1. REMICADE [Suspect]
     Indication: RHEUMATOID ARTHRITIS
     Dosage: 4 PRIOR INFUSIONS
     Route: 042
  2. METHOTREXATE [Concomitant]
  3. PREDNISONE [Concomitant]
  4. RABEPRAZOLE SODIUM [Concomitant]
  5. FLOMAX [Concomitant]
  6. TYLENOL W/ CODEINE [Concomitant]
  7. DIDRONEL [Concomitant]
  8. OTRIVIN [Concomitant]

REACTIONS (1)
  - HERNIA [None]
